FAERS Safety Report 5758849-9 (Version None)
Quarter: 2008Q2

REPORT INFORMATION
  Report Type: 
  Country: None (occurrence: None)
  Receive Date: 20080603
  Receipt Date: 20080603
  Transmission Date: 20081010
  Serious: Yes (Hospitalization)
  Sender: FDA-Public Use
  Company Number: None

PATIENT
  Age: 83 Year
  Sex: Male

DRUGS (2)
  1. PIPERACILLIN AND TAZOBACTAM [Suspect]
     Indication: URINARY TRACT INFECTION
     Dosage: 3.375 MG TID IV
     Route: 042
     Dates: start: 20070920, end: 20070924
  2. PIPERACILLIN AND TAZOBACTAM [Suspect]
     Indication: UROSEPSIS
     Dosage: 3.375 MG TID IV
     Route: 042
     Dates: start: 20070920, end: 20070924

REACTIONS (1)
  - NEPHRITIS [None]
